FAERS Safety Report 11880480 (Version 1)
Quarter: 2015Q4

REPORT INFORMATION
  Report Type: Spontaneous
  Country: US (occurrence: US)
  Receive Date: 20151230
  Receipt Date: 20151230
  Transmission Date: 20160305
  Serious: No
  Sender: FDA-Public Use
  Company Number: US-CELGENEUS-USA-2015125887

PATIENT
  Sex: Female

DRUGS (1)
  1. OTEZLA [Suspect]
     Active Substance: APREMILAST
     Indication: PRODUCT USED FOR UNKNOWN INDICATION
     Dosage: 10MG,20MG,30MG?STARTER PACK
     Route: 048
     Dates: start: 20151208, end: 20151222

REACTIONS (1)
  - Tension headache [Recovered/Resolved]

NARRATIVE: CASE EVENT DATE: 2015
